FAERS Safety Report 16509717 (Version 1)
Quarter: 2019Q3

REPORT INFORMATION
  Report Type: Spontaneous
  Country: US (occurrence: US)
  Receive Date: 20190701
  Receipt Date: 20190701
  Transmission Date: 20191004
  Serious: Yes (Death)
  Sender: FDA-Public Use
  Company Number: None

PATIENT
  Age: 70 Year
  Sex: Female

DRUGS (6)
  1. AMLODIPINE, FUROSEMIDE [Concomitant]
  2. SODIUM BICAR [Concomitant]
  3. METOPROL, PRAVASTATIN [Concomitant]
  4. HYDRALAZINE, ISOSORB [Concomitant]
  5. TACROLIMUS. [Suspect]
     Active Substance: TACROLIMUS
     Indication: RENAL TRANSPLANT
     Route: 048
     Dates: start: 20171023, end: 20190615
  6. MYCOPHENOLIC [Suspect]
     Active Substance: MYCOPHENOLIC ACID
     Indication: RENAL TRANSPLANT
     Route: 048
     Dates: start: 20171023, end: 20190615

REACTIONS (1)
  - Death [None]

NARRATIVE: CASE EVENT DATE: 20190615
